FAERS Safety Report 7314890-6 (Version None)
Quarter: 2011Q1

REPORT INFORMATION
  Report Type: 
  Country: None (occurrence: None)
  Receive Date: 20110225
  Receipt Date: 20100208
  Transmission Date: 20110831
  Serious: No
  Sender: FDA-Public Use
  Company Number: US-MYLANLABS-2010S1001011

PATIENT
  Age: 17 Year
  Sex: Male

DRUGS (3)
  1. SOTRET [Suspect]
     Indication: ACNE CYSTIC
     Route: 048
     Dates: start: 20090101, end: 20090101
  2. AMNESTEEM [Suspect]
     Indication: ACNE CYSTIC
     Route: 048
     Dates: start: 20090919, end: 20100113
  3. AMNESTEEM [Suspect]
     Indication: ACNE
     Route: 048
     Dates: start: 20091101, end: 20100113

REACTIONS (1)
  - AGGRESSION [None]
